FAERS Safety Report 21938055 (Version 1)
Quarter: 2023Q1

REPORT INFORMATION
  Report Type: Spontaneous
  Country: US (occurrence: US)
  Receive Date: 20230201
  Receipt Date: 20230201
  Transmission Date: 20230418
  Serious: No
  Sender: FDA-Public Use
  Company Number: US-MYLANLABS-2023M1006321

PATIENT
  Age: 68 Year
  Sex: Female

DRUGS (1)
  1. SCOPOLAMINE [Suspect]
     Active Substance: SCOPOLAMINE
     Indication: Product used for unknown indication
     Dosage: 1 MILLIGRAM, Q3D (1 / 72 HR MG / 72 HR)
     Route: 062

REACTIONS (2)
  - Product adhesion issue [Unknown]
  - Dizziness [Unknown]

NARRATIVE: CASE EVENT DATE: 20221230
